FAERS Safety Report 24212604 (Version 1)
Quarter: 2024Q3

REPORT INFORMATION
  Report Type: Other
  Country: US (occurrence: US)
  Receive Date: 20240815
  Receipt Date: 20240815
  Transmission Date: 20241016
  Serious: No
  Sender: TRAVERE THERAPEUTICS
  Company Number: US-TRAVERE-2024TVT00659

PATIENT
  Age: 54 Year
  Sex: Male

DRUGS (1)
  1. FILSPARI [Suspect]
     Active Substance: SPARSENTAN
     Indication: IgA nephropathy
     Dosage: 1 TABLET 1 TIME A DAY FOR DAYS 1-14 THEN 2 TABLETS 1 TIME A DAY ON DAYS 15-30.
     Route: 048
     Dates: start: 202405

REACTIONS (1)
  - Blood potassium decreased [Recovered/Resolved]
